FAERS Safety Report 5378472-8 (Version None)
Quarter: 2007Q3

REPORT INFORMATION
  Report Type: 
  Country: None (occurrence: None)
  Receive Date: 20070705
  Receipt Date: 20070628
  Transmission Date: 20080115
  Serious: Yes (Hospitalization)
  Sender: FDA-Public Use
  Company Number: DE-AVENTIS-200711661DE

PATIENT
  Age: 68 Year
  Sex: Female
  Weight: 73.5 kg

DRUGS (2)
  1. DOCETAXEL [Suspect]
     Route: 041
     Dates: start: 20070322, end: 20070322
  2. FORTECORTIN                        /00016001/ [Concomitant]
     Route: 041
     Dates: start: 20070322, end: 20070322

REACTIONS (6)
  - ABDOMINAL PAIN UPPER [None]
  - BACK PAIN [None]
  - FATIGUE [None]
  - FEBRILE NEUTROPENIA [None]
  - NAUSEA [None]
  - TINNITUS [None]
